FAERS Safety Report 25221080 (Version 1)
Quarter: 2025Q2

REPORT INFORMATION
  Report Type: Spontaneous
  Country: CN (occurrence: CN)
  Receive Date: 20250421
  Receipt Date: 20250421
  Transmission Date: 20250716
  Serious: Yes (Other)
  Sender: MERCK SHARP & DOHME LLC
  Company Number: CN-009507513-2276533

PATIENT
  Age: 64 Year
  Sex: Female
  Weight: 67 kg

DRUGS (3)
  1. KEYTRUDA [Suspect]
     Active Substance: PEMBROLIZUMAB
     Indication: Bile duct cancer
     Route: 041
     Dates: start: 20250318, end: 20250318
  2. GIMERACIL\OTERACIL\TEGAFUR [Suspect]
     Active Substance: GIMERACIL\OTERACIL POTASSIUM\TEGAFUR
     Indication: Bile duct cancer
     Dosage: DAILY DOSE: 40 MG; DAY 1-14
     Route: 048
     Dates: start: 20250318, end: 20250331
  3. PACLITAXEL [Suspect]
     Active Substance: PACLITAXEL
     Indication: Bile duct cancer
     Route: 041
     Dates: start: 20250318, end: 20250318

REACTIONS (2)
  - Myelosuppression [Recovering/Resolving]
  - Product use issue [Unknown]

NARRATIVE: CASE EVENT DATE: 20250318
